FAERS Safety Report 6261762-4 (Version None)
Quarter: 2009Q3

REPORT INFORMATION
  Report Type: 
  Country: None (occurrence: None)
  Receive Date: 20090709
  Receipt Date: 20090707
  Transmission Date: 20100115
  Serious: Yes (Hospitalization)
  Sender: FDA-Public Use
  Company Number: CA-ROXANE LABORATORIES, INC.-2009-RO-00655RO

PATIENT
  Age: 81 Year
  Sex: Male

DRUGS (10)
  1. CLARITHROMYCIN [Suspect]
     Indication: HELICOBACTER GASTRITIS
     Dosage: 1000 MG
  2. DURAGESIC-100 [Suspect]
     Indication: NECK PAIN
     Route: 062
  3. METRONIDAZOLE [Suspect]
     Indication: HELICOBACTER GASTRITIS
  4. NALOXONE [Suspect]
     Indication: RESPIRATORY DEPRESSION
     Route: 042
  5. OXYGEN [Concomitant]
     Indication: CHRONIC OBSTRUCTIVE PULMONARY DISEASE
  6. PREDNISONE [Concomitant]
  7. ALBUTEROL [Concomitant]
     Indication: CHRONIC OBSTRUCTIVE PULMONARY DISEASE
  8. IPRATROPIUM BROMIDE [Concomitant]
     Indication: CHRONIC OBSTRUCTIVE PULMONARY DISEASE
  9. LEVOFLOXACIN [Concomitant]
     Indication: PAROTITIS
  10. VANCOMYCIN [Concomitant]
     Indication: PAROTITIS
     Route: 042

REACTIONS (4)
  - AGITATION [None]
  - DRUG INTERACTION [None]
  - RESPIRATORY DEPRESSION [None]
  - TACHYCARDIA [None]
